FAERS Safety Report 24597384 (Version 1)
Quarter: 2024Q4

REPORT INFORMATION
  Report Type: Spontaneous
  Country: CH (occurrence: CH)
  Receive Date: 20241110
  Receipt Date: 20241110
  Transmission Date: 20250115
  Serious: Yes (Hospitalization, Other)
  Sender: ALEXION PHARMACEUTICALS
  Company Number: None

PATIENT
  Age: 72 Year
  Weight: 75.3 kg

DRUGS (17)
  1. DAPAGLIFLOZIN [Suspect]
     Active Substance: DAPAGLIFLOZIN
     Dosage: 1 SEPARATED DOSES
  2. ZOLEDRONIC ACID ANHYDROUS [Suspect]
     Active Substance: ZOLEDRONIC ACID ANHYDROUS
     Indication: Osteoporosis
     Dosage: 1 SEPARATED DOSES
  3. ASPIRIN [Suspect]
     Active Substance: ASPIRIN
     Dosage: 1 SEPARATED DOSES
  4. ESOMEPRAZOLE MAGNESIUM [Suspect]
     Active Substance: ESOMEPRAZOLE MAGNESIUM
     Dosage: 40 MILLIGRAM
  5. TORSEMIDE [Suspect]
     Active Substance: TORSEMIDE
  6. LISINOPRIL [Suspect]
     Active Substance: LISINOPRIL
     Dosage: 2.5 MILLIGRAM
  7. BISOPROLOL MEPHA [Concomitant]
     Dosage: 2.5 MILLIGRAM
  8. PRAVASTATIN [Concomitant]
     Active Substance: PRAVASTATIN
     Dosage: 20 MILLIGRAM
  9. FOLIC ACID [Concomitant]
     Active Substance: FOLIC ACID
     Dosage: 5 MILLIGRAM
  10. CHOLECALCIFEROL [Concomitant]
     Active Substance: CHOLECALCIFEROL
     Dosage: 36 DOSAGE FORM
  11. BRICANYL [Concomitant]
     Active Substance: TERBUTALINE SULFATE
     Dosage: 2 PUMPS IN THE MORNING, 2 PUMPS IN THE EVENING AND, IF NECESSARY, AN ADDITIONAL 2 PUMPS
  12. DAFALGAN [Concomitant]
     Active Substance: ACETAMINOPHEN
     Dosage: IN RESERVE 3X T?GLICH BEI SCHMERZEN / FIEBER
  13. LORMETAZEPAM [Concomitant]
     Active Substance: LORMETAZEPAM
     Dosage: 1 MILLIGRAM
  14. MAGNESIUM ASPARTATE HYDROCHLORIDE [Concomitant]
     Active Substance: MAGNESIUM ASPARTATE HYDROCHLORIDE
     Indication: Muscle spasms
     Dosage: MAX. 2X/DAY 1 SACHET
  15. NITROLINGUAL [Concomitant]
     Active Substance: NITROGLYCERIN
     Dosage: 2 DOSAGE FORM
  16. PREDNISOLONE [Concomitant]
     Active Substance: PREDNISOLONE
     Dosage: 25 MILLIGRAM
  17. DIPROPHOS [Concomitant]
     Active Substance: BETAMETHASONE DIPROPIONATE\BETAMETHASONE SODIUM PHOSPHATE
     Dosage: FACET-NEAR INFILTRATION L4/5
     Route: 050

REACTIONS (1)
  - Nephritis [Recovered/Resolved with Sequelae]
